FAERS Safety Report 6893066-0 (Version None)
Quarter: 2010Q3

REPORT INFORMATION
  Report Type: 
  Country: None (occurrence: None)
  Receive Date: 20100731
  Receipt Date: 20090324
  Transmission Date: 20110219
  Serious: No
  Sender: FDA-Public Use
  Company Number: US-PFIZER INC-2008100774

PATIENT
  Sex: Male
  Weight: 79.38 kg

DRUGS (5)
  1. NEURONTIN [Suspect]
     Indication: PAIN IN EXTREMITY
     Route: 048
     Dates: start: 20070901
  2. LYRICA [Suspect]
     Indication: PAIN IN EXTREMITY
     Dosage: 75 MG, 2X/DAY
     Dates: start: 20081104
  3. LYRICA [Suspect]
     Dosage: 150 MG, 2X/DAY
     Route: 048
     Dates: start: 20081112
  4. PRINZIDE [Concomitant]
     Indication: HYPERTENSION
     Dosage: LISINOPRIL 10MG, HYDROCHLOROTHIAZIDE 12.5MG
  5. GLYBURIDE [Concomitant]
     Indication: DIABETES MELLITUS
     Dosage: 5 MG, 3X/DAY

REACTIONS (5)
  - BLOOD PRESSURE INCREASED [None]
  - COUGH [None]
  - FEELING OF BODY TEMPERATURE CHANGE [None]
  - NASOPHARYNGITIS [None]
  - WEIGHT INCREASED [None]
